FAERS Safety Report 4611390-9 (Version None)
Quarter: 2005Q2

REPORT INFORMATION
  Report Type: 
  Country: None (occurrence: None)
  Receive Date: 20050311
  Receipt Date: 20041222
  Transmission Date: 20051028
  Serious: No
  Sender: FDA-Public Use
  Company Number: 2004-BP-14330BP

PATIENT
  Age: 76 Year
  Sex: Male
  Weight: 76.36 kg

DRUGS (10)
  1. SPIRIVA [Suspect]
     Indication: CHRONIC OBSTRUCTIVE PULMONARY DISEASE
     Dosage: 18 MCG (18 MCG, HALF CAP TWICE A DAY), IH
     Route: 055
     Dates: start: 20041125, end: 20050110
  2. ALBUTEROL + IPRATROPIUM (SALBUTAMOL W/ IPRATROPIUM) [Concomitant]
  3. LOPRESSOR [Concomitant]
  4. PEPCID [Concomitant]
  5. ZOCOR [Concomitant]
  6. LOTREL [Concomitant]
  7. DUONEB [Concomitant]
  8. FOLIC ACID [Concomitant]
  9. ASPIRIN [Concomitant]
  10. BROMIDE INHALATION SOLUTION + NEBULIZER [Concomitant]

REACTIONS (2)
  - DRY THROAT [None]
  - PHARYNGOLARYNGEAL PAIN [None]
